FAERS Safety Report 4422125-7 (Version None)
Quarter: 2004Q3

REPORT INFORMATION
  Report Type: 
  Country: None (occurrence: None)
  Receive Date: 20040712
  Receipt Date: 20030520
  Transmission Date: 20050211
  Serious: No
  Sender: FDA-Public Use
  Company Number: TAP2003Q00947

PATIENT
  Age: 17 Year
  Sex: Male
  Weight: 78.9259 kg

DRUGS (2)
  1. PREVACID [Suspect]
     Indication: GASTROOESOPHAGEAL REFLUX DISEASE
     Dosage: 30 MG, 2 IN 1 D, PER ORAL
     Route: 048
     Dates: start: 20030414, end: 20030416
  2. ALBUTEROL [Concomitant]

REACTIONS (1)
  - DRUG INEFFECTIVE [None]
